FAERS Safety Report 23348065 (Version 1)
Quarter: 2023Q4

REPORT INFORMATION
  Report Type: Spontaneous
  Country: US (occurrence: None)
  Receive Date: 20231228
  Receipt Date: 20231228
  Transmission Date: 20240110
  Serious: No
  Sender: FDA-Public Use
  Company Number: None

PATIENT
  Age: 81 Year
  Sex: Female
  Weight: 77.11 kg

DRUGS (1)
  1. STELARA [Suspect]
     Active Substance: USTEKINUMAB
     Indication: Psoriasis
     Dosage: INJECTE 45MG SUBCUTANEOUSLY EVERY 12 WEEKS  AS DIRECTED?
     Route: 058
     Dates: start: 202011

REACTIONS (2)
  - Back pain [None]
  - Transient ischaemic attack [None]
